FAERS Safety Report 13613445 (Version 1)
Quarter: 2017Q2

REPORT INFORMATION
  Report Type: Spontaneous
  Country: FI (occurrence: FI)
  Receive Date: 20170605
  Receipt Date: 20170605
  Transmission Date: 20170830
  Serious: Yes (Disabling)
  Sender: FDA-Public Use
  Company Number: PHHY2017FI063295

PATIENT
  Sex: Male

DRUGS (2)
  1. DERMOVAT [Concomitant]
     Active Substance: CLOBETASOL
     Indication: PSORIASIS
     Dosage: 0.5 MG/G, UNK
     Route: 061
  2. COSENTYX [Suspect]
     Active Substance: SECUKINUMAB
     Indication: PSORIASIS
     Dosage: 300 MG, QMO
     Route: 058
     Dates: start: 20170118, end: 20170302

REACTIONS (4)
  - Drug hypersensitivity [Recovering/Resolving]
  - Rash maculo-papular [Recovering/Resolving]
  - Rash [Recovering/Resolving]
  - Eczema [Recovering/Resolving]
